FAERS Safety Report 4676560-2 (Version None)
Quarter: 2005Q2

REPORT INFORMATION
  Report Type: 
  Country: None (occurrence: None)
  Receive Date: 20050526
  Receipt Date: 20050526
  Transmission Date: 20051028
  Serious: No
  Sender: FDA-Public Use
  Company Number: None

PATIENT
  Sex: Male
  Weight: 74.1 kg

DRUGS (2)
  1. CETUXIMAB [Suspect]
     Dosage: 400 MG/M2 LOADING DOSE, THEN CETUXIMAB 250 MG /M2 IV DAYS 8, 15, AND 22 OF CYCLE 1 AND 1, 8, 15, 22
     Dates: start: 20050315
  2. GEMZAR [Suspect]
     Dosage: 1, 000 MG/M2 IV DAY 1, 8, 15, 22 CYCLE 1 THEN 1,8,15 PER CYCLE
     Route: 042

REACTIONS (2)
  - HAEMATOCHEZIA [None]
  - HAEMORRHOIDAL HAEMORRHAGE [None]
